FAERS Safety Report 13579135 (Version 1)
Quarter: 2017Q2

REPORT INFORMATION
  Report Type: Spontaneous
  Country: US (occurrence: US)
  Receive Date: 20170524
  Receipt Date: 20170524
  Transmission Date: 20170830
  Serious: No
  Sender: FDA-Public Use
  Company Number: None

PATIENT
  Sex: Female

DRUGS (2)
  1. REPATHA [Suspect]
     Active Substance: EVOLOCUMAB
     Indication: TYPE IIA HYPERLIPIDAEMIA
     Route: 058
     Dates: start: 201702, end: 201704
  2. REPATHA [Suspect]
     Active Substance: EVOLOCUMAB
     Indication: CAROTID ARTERY OCCLUSION
     Route: 058
     Dates: start: 201702, end: 201704

REACTIONS (3)
  - Nausea [None]
  - Dizziness [None]
  - Change in sustained attention [None]
